FAERS Safety Report 12159435 (Version 2)
Quarter: 2019Q1

REPORT INFORMATION
  Report Type: Report from Study
  Country: JP (occurrence: JP)
  Receive Date: 20160308
  Receipt Date: 20190122
  Transmission Date: 20190417
  Serious: Yes (Hospitalization, Other)
  Sender: FDA-Public Use
  Company Number: JP-VIIV HEALTHCARE LIMITED-A201300466

PATIENT
  Age: 8 Decade
  Sex: Male
  Weight: 63 kg

DRUGS (38)
  1. MARAVIROC [Suspect]
     Active Substance: MARAVIROC
     Indication: HIV INFECTION
     Dosage: 1200 MG, UNK
     Route: 048
     Dates: start: 20110615, end: 20130804
  2. ISENTRESS [Suspect]
     Active Substance: RALTEGRAVIR POTASSIUM
     Indication: HIV INFECTION
     Dosage: 800 MG, UNK
     Route: 048
     Dates: start: 20110615
  3. OLMETEC [Suspect]
     Active Substance: OLMESARTAN MEDOXOMIL
     Indication: HYPERTENSION
     Dosage: 10 MG, QD
     Route: 048
     Dates: start: 20110531, end: 20110614
  4. VIRAMUNE [Concomitant]
     Active Substance: NEVIRAPINE
     Dosage: 100 MG, UNK
     Dates: start: 20060313, end: 20060326
  5. VIRAMUNE [Concomitant]
     Active Substance: NEVIRAPINE
     Dosage: 200 MG, UNK
     Dates: start: 20060327, end: 20060409
  6. AMLODIN [Concomitant]
     Active Substance: AMLODIPINE BESYLATE
     Dosage: 10 MG, QD
     Dates: start: 20111212
  7. ASPARA POTASSIUM [Concomitant]
     Active Substance: POTASSIUM ASPARTATE
     Indication: PROPHYLAXIS
     Dosage: 300 MG, BID
     Dates: start: 20130327, end: 20130401
  8. TIMOPTOL [Concomitant]
     Active Substance: TIMOLOL
     Indication: OCULAR HYPERTENSION
     Dosage: 1 DF, BID
     Dates: start: 20130314, end: 20130401
  9. MARAVIROC [Suspect]
     Active Substance: MARAVIROC
     Dosage: 300 MG, UNK
     Dates: start: 20130930, end: 20131006
  10. VASOLAN [Concomitant]
     Active Substance: VERAPAMIL HYDROCHLORIDE
     Indication: ATRIAL FIBRILLATION
     Dosage: 40 MG, TID
     Dates: end: 20110530
  11. XALATAN [Concomitant]
     Active Substance: LATANOPROST
     Indication: OCULAR HYPERTENSION
     Dosage: 1 DF, QD
     Dates: start: 20130225
  12. OLMETEC [Suspect]
     Active Substance: OLMESARTAN MEDOXOMIL
     Dosage: 20 MG, QD
     Route: 048
     Dates: start: 20110615, end: 20110628
  13. VIRACEPT [Concomitant]
     Active Substance: NELFINAVIR MESYLATE
     Indication: HIV INFECTION
     Dosage: 2500 MG, UNK
     Dates: end: 20110614
  14. TAMBOCOR [Concomitant]
     Active Substance: FLECAINIDE ACETATE
     Indication: ATRIAL FIBRILLATION
     Dosage: 50 MG, BID
     Dates: start: 20110620, end: 20130107
  15. TRUSOPT [Concomitant]
     Active Substance: DORZOLAMIDE HYDROCHLORIDE
     Indication: OCULAR HYPERTENSION
     Dosage: 1 DF, TID
     Dates: start: 20130314, end: 20130401
  16. OLMETEC [Suspect]
     Active Substance: OLMESARTAN MEDOXOMIL
     Dosage: 40 MG, QD
     Route: 048
     Dates: start: 20110629, end: 20121217
  17. FLUITRAN [Concomitant]
     Active Substance: TRICHLORMETHIAZIDE
     Indication: HYPERTENSION
     Dosage: 2 MG, QD
     Dates: start: 20120206, end: 20120402
  18. SUNRYTHM [Concomitant]
     Active Substance: PILSICAINIDE HYDROCHLORIDE
     Indication: ATRIAL FIBRILLATION
     Dosage: 50 MG, TID
     Dates: start: 20130315
  19. DIAMOX SEQUELS [Concomitant]
     Active Substance: ACETAZOLAMIDE
     Indication: VITREOUS HAEMORRHAGE
     Dosage: 250 MG, QD
     Dates: start: 20130305, end: 20130314
  20. INTELENCE [Suspect]
     Active Substance: ETRAVIRINE
     Dosage: 400 MG, UNK
     Dates: start: 20130512
  21. TENORMIN [Concomitant]
     Active Substance: ATENOLOL
     Indication: ATRIAL FIBRILLATION
     Dosage: 25 MG, QD
     Dates: start: 20110531, end: 20110619
  22. AMLODIN [Concomitant]
     Active Substance: AMLODIPINE BESYLATE
     Indication: HYPERTENSION
     Dosage: 5 MG, QD
     Dates: start: 20111114, end: 20111211
  23. FUROSEMIDE. [Concomitant]
     Active Substance: FUROSEMIDE
     Indication: HYPERKALAEMIA
     Dosage: 20 MG, QD
     Dates: start: 20120320
  24. AVASTIN [Concomitant]
     Active Substance: BEVACIZUMAB
     Indication: GLAUCOMA
     Dates: start: 20130326, end: 20130326
  25. MARAVIROC [Suspect]
     Active Substance: MARAVIROC
     Dosage: 1200 MG, UNK
     Dates: start: 20130909, end: 20130929
  26. VIRAMUNE [Concomitant]
     Active Substance: NEVIRAPINE
     Dosage: 10 MG, UNK
     Dates: start: 20060213, end: 20060226
  27. VIRAMUNE [Concomitant]
     Active Substance: NEVIRAPINE
     Dosage: 400 MG, UNK
     Dates: start: 20060410, end: 20110614
  28. VIREAD [Concomitant]
     Active Substance: TENOFOVIR DISOPROXIL FUMARATE
     Indication: HIV INFECTION
     Dosage: 300 MG, UNK
     Dates: end: 20110614
  29. LACTEC [Concomitant]
     Active Substance: CALCIUM CHLORIDE ANHYDROUS\POTASSIUM CHLORIDE\SODIUM CHLORIDE\SODIUM LACTATE
     Indication: GASTROENTERITIS
     Dosage: 500 ML, QD
     Dates: start: 20120220, end: 20120220
  30. ALOSITOL [Concomitant]
     Active Substance: ALLOPURINOL
     Indication: HYPERURICAEMIA
     Dosage: 100 MG, BID
     Dates: start: 20120401
  31. MARAVIROC [Suspect]
     Active Substance: MARAVIROC
     Dosage: 600 MG, UNK
     Dates: start: 20130805, end: 20130908
  32. VIRAMUNE [Concomitant]
     Active Substance: NEVIRAPINE
     Indication: HIV INFECTION
     Dosage: 4 MG, UNK
     Dates: start: 20060130, end: 20060212
  33. VIRAMUNE [Concomitant]
     Active Substance: NEVIRAPINE
     Dosage: 40 MG, UNK
     Dates: start: 20060227, end: 20060312
  34. DIAMOX SEQUELS [Concomitant]
     Active Substance: ACETAZOLAMIDE
     Indication: OCULAR HYPERTENSION
     Dosage: 250 MG, BID
     Dates: start: 20130326, end: 20130401
  35. BAYASPIRIN [Concomitant]
     Active Substance: ASPIRIN
     Indication: CEREBRAL INFARCTION
     Dosage: 100 MG, QD
     Dates: start: 20120401
  36. MARAVIROC [Suspect]
     Active Substance: MARAVIROC
     Dosage: 1200 MG, UNK
     Dates: start: 20131007
  37. INTELENCE [Suspect]
     Active Substance: ETRAVIRINE
     Indication: HIV INFECTION
     Dosage: 200 MG, UNK
     Route: 048
     Dates: start: 20110615, end: 20130512
  38. FUROSEMIDE. [Concomitant]
     Active Substance: FUROSEMIDE
     Indication: HYPERKALAEMIA
     Dosage: 20 MG, QD
     Dates: start: 20120220, end: 20120319

REACTIONS (9)
  - Cerebral infarction [Recovering/Resolving]
  - Hyperkalaemia [Recovered/Resolved]
  - Vitrectomy [Unknown]
  - Vitreous haemorrhage [Recovered/Resolved]
  - Glaucoma [Recovering/Resolving]
  - Hyperuricaemia [Recovering/Resolving]
  - Lenticular operation [Unknown]
  - Gastroenteritis [Recovering/Resolving]
  - Dermatophytosis of nail [Recovered/Resolved]

NARRATIVE: CASE EVENT DATE: 20110629
